FAERS Safety Report 19786640 (Version 4)
Quarter: 2022Q1

REPORT INFORMATION
  Report Type: Spontaneous
  Country: US (occurrence: US)
  Receive Date: 20210903
  Receipt Date: 20220217
  Transmission Date: 20220424
  Serious: Yes (Disabling, Other)
  Sender: FDA-Public Use
  Company Number: US-PFIZER INC-202101139951

PATIENT
  Age: 33 Year
  Sex: Male

DRUGS (50)
  1. PREVACID [Suspect]
     Active Substance: LANSOPRAZOLE
     Indication: Dyspepsia
     Dosage: UNK
     Dates: start: 1995, end: 1996
  2. PREVACID [Suspect]
     Active Substance: LANSOPRAZOLE
     Indication: Gastrooesophageal reflux disease
     Dosage: UNK
     Dates: start: 1995, end: 2011
  3. PROTONIX [Suspect]
     Active Substance: PANTOPRAZOLE SODIUM
     Indication: Dyspepsia
     Dosage: UNK
     Dates: start: 1995, end: 2011
  4. PROTONIX [Suspect]
     Active Substance: PANTOPRAZOLE SODIUM
     Indication: Gastrooesophageal reflux disease
     Dosage: UNK
     Dates: start: 2000
  5. PREVACID 24 HR [Suspect]
     Active Substance: LANSOPRAZOLE
     Indication: Dyspepsia
     Dosage: UNK
     Dates: start: 1995, end: 2011
  6. PREVACID 24 HR [Suspect]
     Active Substance: LANSOPRAZOLE
     Indication: Gastrooesophageal reflux disease
     Dosage: UNK
     Dates: start: 2009, end: 2019
  7. LANSOPRAZOLE [Suspect]
     Active Substance: LANSOPRAZOLE
     Indication: Dyspepsia
     Dosage: UNK
     Dates: start: 1996
  8. LANSOPRAZOLE [Suspect]
     Active Substance: LANSOPRAZOLE
     Indication: Gastrooesophageal reflux disease
  9. NEXIUM [Suspect]
     Active Substance: ESOMEPRAZOLE MAGNESIUM
     Indication: Dyspepsia
     Dosage: UNK
     Dates: start: 1995, end: 2011
  10. NEXIUM [Suspect]
     Active Substance: ESOMEPRAZOLE MAGNESIUM
     Indication: Gastrooesophageal reflux disease
     Dosage: UNK
     Dates: start: 2002, end: 2004
  11. NEXIUM 24HR [Suspect]
     Active Substance: ESOMEPRAZOLE MAGNESIUM
     Indication: Dyspepsia
     Dosage: UNK
     Dates: start: 1995, end: 2011
  12. NEXIUM 24HR [Suspect]
     Active Substance: ESOMEPRAZOLE MAGNESIUM
     Dosage: UNK
     Dates: start: 2005
  13. ESOMEPRAZOLE [Suspect]
     Active Substance: ESOMEPRAZOLE
     Indication: Dyspepsia
     Dosage: UNK
     Dates: start: 2005
  14. PRILOSEC [Suspect]
     Active Substance: OMEPRAZOLE MAGNESIUM
     Indication: Dyspepsia
     Dosage: UNK
     Dates: start: 1989, end: 1990
  15. PRILOSEC [Suspect]
     Active Substance: OMEPRAZOLE MAGNESIUM
     Indication: Gastrooesophageal reflux disease
     Dosage: UNK
     Dates: start: 1995, end: 2011
  16. PRILOSEC OTC [Suspect]
     Active Substance: OMEPRAZOLE MAGNESIUM
     Indication: Dyspepsia
     Dosage: UNK
     Dates: start: 1995, end: 2011
  17. PRILOSEC OTC [Suspect]
     Active Substance: OMEPRAZOLE MAGNESIUM
     Indication: Gastrooesophageal reflux disease
     Dosage: UNK
     Dates: start: 2005, end: 2019
  18. OMEPRAZOLE [Suspect]
     Active Substance: OMEPRAZOLE
     Indication: Dyspepsia
     Dosage: UNK
     Dates: start: 1989, end: 1990
  19. OMEPRAZOLE [Suspect]
     Active Substance: OMEPRAZOLE
     Indication: Gastrooesophageal reflux disease
  20. PANTOPRAZOLE [Suspect]
     Active Substance: PANTOPRAZOLE
     Indication: Dyspepsia
     Dosage: 40 MG
     Dates: start: 2014
  21. PANTOPRAZOLE [Suspect]
     Active Substance: PANTOPRAZOLE
     Indication: Gastrooesophageal reflux disease
  22. HUMIRA [Concomitant]
     Active Substance: ADALIMUMAB
     Indication: Psoriasis
     Dosage: UNK
     Dates: start: 2011
  23. ALEVE [Concomitant]
     Active Substance: NAPROXEN SODIUM
     Indication: Pain
     Dosage: UNK
     Dates: start: 1990
  24. TYLENOL [Concomitant]
     Active Substance: ACETAMINOPHEN
     Indication: Pain
     Dosage: UNK
     Dates: start: 1990
  25. BENADRYL [Concomitant]
     Active Substance: DIPHENHYDRAMINE HYDROCHLORIDE
     Indication: Multiple allergies
     Dosage: UNK
     Dates: start: 1990
  26. SUDAFED [Concomitant]
     Active Substance: PSEUDOEPHEDRINE HYDROCHLORIDE
     Indication: Multiple allergies
     Dosage: UNK
     Dates: start: 1990
  27. PEPCID [Concomitant]
     Active Substance: FAMOTIDINE
     Dosage: UNK
  28. PEPCID AC [Concomitant]
     Active Substance: FAMOTIDINE
     Dosage: UNK
  29. PEPCID COMPLETE [Concomitant]
     Active Substance: CALCIUM CARBONATE\FAMOTIDINE\MAGNESIUM HYDROXIDE
     Dosage: UNK
  30. ZANTAC 150 (RANITIDINE HYDROCHLORIDE) [Concomitant]
     Active Substance: RANITIDINE HYDROCHLORIDE
     Dosage: UNK
  31. TAGAMET HB (OTC) [Concomitant]
     Dosage: UNK
     Dates: start: 1990
  32. ZANTAC 150 (RANITIDINE HYDROCHLORIDE) [Concomitant]
     Active Substance: RANITIDINE HYDROCHLORIDE
     Dosage: UNK
     Dates: start: 1990
  33. NIZATIDINE [Concomitant]
     Active Substance: NIZATIDINE
     Dosage: UNK
     Dates: start: 1990
  34. CALCIUM CARBONATE\MAGNESIUM CARBONATE\MAGNESIUM TRISILICATE [Concomitant]
     Active Substance: CALCIUM CARBONATE\MAGNESIUM CARBONATE\MAGNESIUM TRISILICATE
     Indication: Antacid therapy
     Dosage: UNK
     Dates: start: 1990
  35. ROLAIDS [CALCIUM CARBONATE;MAGNESIUM HYDROXIDE] [Concomitant]
     Indication: Antacid therapy
     Dosage: UNK
     Dates: start: 1990
  36. ALKA-SELTZER [Concomitant]
     Active Substance: ANHYDROUS CITRIC ACID\ASPIRIN\SODIUM BICARBONATE
     Indication: Antacid therapy
     Dosage: UNK
     Dates: start: 1990
  37. PEPTO-BISMOL [Concomitant]
     Active Substance: BISMUTH SUBSALICYLATE
     Indication: Antacid therapy
     Dosage: UNK
     Dates: start: 1990
  38. LIPITOR [Concomitant]
     Active Substance: ATORVASTATIN CALCIUM
     Indication: Cardiac disorder
     Dosage: UNK
     Dates: start: 202111
  39. CINACALCET [Concomitant]
     Active Substance: CINACALCET
     Indication: Hyperthyroidism
     Dosage: UNK
     Dates: start: 202110
  40. HYDROMORPHONE [Concomitant]
     Active Substance: HYDROMORPHONE
     Indication: Pain
     Dosage: UNK
     Dates: start: 202110
  41. TIZANIDINE [Concomitant]
     Active Substance: TIZANIDINE
     Indication: Muscle relaxant therapy
     Dosage: UNK
     Dates: start: 202110
  42. TACROLIMUS [Concomitant]
     Active Substance: TACROLIMUS
     Indication: Transplant rejection
     Dosage: UNK
     Dates: start: 201904
  43. PREDNISONE [Concomitant]
     Active Substance: PREDNISONE
     Indication: Transplant rejection
     Dosage: UNK
     Dates: start: 2019
  44. HYOSCYAMINE [Concomitant]
     Active Substance: HYOSCYAMINE
     Indication: Irritable bowel syndrome
     Dosage: UNK
     Dates: start: 2021
  45. VIAGRA [Concomitant]
     Active Substance: SILDENAFIL CITRATE
     Indication: Erectile dysfunction
     Dosage: UNK
     Dates: start: 202107
  46. MYCOPHENOLIC ACID [Concomitant]
     Active Substance: MYCOPHENOLIC ACID
     Indication: Transplant rejection
     Dosage: UNK
     Dates: start: 201904
  47. LOSARTAN [Concomitant]
     Active Substance: LOSARTAN
     Indication: Hypertension
     Dosage: UNK
     Dates: start: 202105
  48. ASPIRIN [Concomitant]
     Active Substance: ASPIRIN
     Indication: Cardiac disorder
     Dosage: UNK
     Dates: start: 2019
  49. VITAMIN D NOS [Concomitant]
     Active Substance: VITAMIN D NOS
     Indication: Vitamin D deficiency
     Dosage: UNK
     Dates: start: 2019
  50. SODIUM BICARBONATE [Concomitant]
     Active Substance: SODIUM BICARBONATE
     Indication: Renal tubular acidosis
     Dosage: UNK
     Dates: start: 201904

REACTIONS (6)
  - Acute kidney injury [Unknown]
  - Chronic kidney disease [Unknown]
  - End stage renal disease [Not Recovered/Not Resolved]
  - Renal failure [Unknown]
  - Anxiety [Unknown]
  - Depression [Unknown]

NARRATIVE: CASE EVENT DATE: 20110201
